FAERS Safety Report 9548824 (Version 3)
Quarter: 2013Q4

REPORT INFORMATION
  Report Type: Spontaneous
  Country: SI (occurrence: SI)
  Receive Date: 20130924
  Receipt Date: 20131009
  Transmission Date: 20140711
  Serious: Yes (Hospitalization, Other)
  Sender: FDA-Public Use
  Company Number: SI-SANOFI-AVENTIS-FABR-1003541

PATIENT
  Age: 56 Year
  Sex: Male
  Weight: 82 kg

DRUGS (18)
  1. FABRAZYME [Suspect]
     Indication: FABRY^S DISEASE
     Dosage: 0.85 MG/KG, Q2W
     Route: 042
     Dates: start: 20130308
  2. PERINDOPRIL [Concomitant]
     Indication: HYPOTENSION
     Dosage: 7.5 MG, UNK
  3. PERINDOPRIL [Concomitant]
     Indication: CARDIOMYOPATHY
     Dosage: 7.5 MG, UNK
  4. ACETYLSALICYLIC ACID [Concomitant]
     Indication: CARDIOVASCULAR DISORDER
     Dosage: 100 MG, UNK
  5. ACETYLSALICYLIC ACID [Concomitant]
     Indication: VENOUS INSUFFICIENCY
     Dosage: 100 MG, UNK
  6. ROSUVASTATIN [Concomitant]
     Indication: HYPERCHOLESTEROLAEMIA
     Dosage: 10 MG, UNK
  7. TAMSULOSIN [Concomitant]
     Indication: UROGENITAL DISORDER
     Dosage: 0.4 MG, UNK
     Dates: start: 2012
  8. TAMSULOSIN [Concomitant]
     Dosage: 0.4 MG, UNK
     Dates: start: 2012
  9. ESCITALOPRAM [Concomitant]
     Indication: DEPRESSION
     Dosage: 10 MG, UNK
     Dates: start: 2012
  10. ESCITALOPRAM [Concomitant]
     Dosage: 10 MG, UNK
     Dates: start: 2012
  11. PARICALCITOL [Concomitant]
     Indication: RENAL DISORDER
     Dosage: UNK
     Dates: start: 2012
  12. PARICALCITOL [Concomitant]
     Indication: HEADACHE
     Dosage: UNK
     Dates: start: 2012
  13. ALPRAZOLAM [Concomitant]
     Indication: MENTAL DISORDER
     Dosage: 0.25 MG, UNK
  14. ALPRAZOLAM [Concomitant]
     Indication: ANXIETY
     Dosage: 0.25 MG, UNK
  15. PARACETAMOL [Concomitant]
     Indication: HEADACHE
     Dosage: 500 MG, UNK
     Dates: start: 20130819
  16. PARACETAMOL [Concomitant]
     Dosage: 500 MG, UNK
     Dates: start: 20130819
  17. BROMAZEPAM [Concomitant]
     Indication: MENTAL DISORDER
     Dosage: 0.5 MG, UNK
     Dates: start: 20130819
  18. BROMAZEPAM [Concomitant]
     Indication: ANXIETY
     Dosage: 0.5 MG, UNK
     Dates: start: 20130819

REACTIONS (7)
  - Cerebrovascular accident [Recovered/Resolved with Sequelae]
  - Sensory loss [Recovered/Resolved with Sequelae]
  - Cognitive disorder [Not Recovered/Not Resolved]
  - Amnesia [Not Recovered/Not Resolved]
  - Vertigo [Not Recovered/Not Resolved]
  - Paraesthesia [Recovered/Resolved with Sequelae]
  - Dizziness [Not Recovered/Not Resolved]
